FAERS Safety Report 8046583-4 (Version None)
Quarter: 2012Q1

REPORT INFORMATION
  Report Type: 
  Country: None (occurrence: None)
  Receive Date: 20120113
  Receipt Date: 20120104
  Transmission Date: 20120608
  Serious: Yes (Other)
  Sender: FDA-Public Use
  Company Number: US-ASTRAZENECA-2011SE73507

PATIENT
  Age: 71 Year
  Sex: Female

DRUGS (1)
  1. SYMBICORT [Suspect]
     Route: 055

REACTIONS (4)
  - NEOPLASM MALIGNANT [None]
  - IMMUNODEFICIENCY COMMON VARIABLE [None]
  - MALAISE [None]
  - LUNG NEOPLASM MALIGNANT [None]
